FAERS Safety Report 23288719 (Version 1)
Quarter: 2023Q4

REPORT INFORMATION
  Report Type: Spontaneous
  Country: US (occurrence: None)
  Receive Date: 20231211
  Receipt Date: 20231211
  Transmission Date: 20240110
  Serious: Yes (Hospitalization)
  Sender: FDA-Public Use
  Company Number: None

PATIENT
  Age: 55 Year
  Sex: Male

DRUGS (3)
  1. DUPIXENT [Suspect]
     Active Substance: DUPILUMAB
  2. Albuterol Sulfate Inhalation Nebuli [Concomitant]
  3. Fluticasone Propionate Nasal Suspen [Concomitant]

REACTIONS (4)
  - Injection site pain [None]
  - COVID-19 [None]
  - Ear disorder [None]
  - Wrong technique in product usage process [None]

NARRATIVE: CASE EVENT DATE: 20230301
